FAERS Safety Report 9145257 (Version 1)
Quarter: 2013Q1

REPORT INFORMATION
  Report Type: Spontaneous
  Country: US (occurrence: None)
  Receive Date: 20130226
  Receipt Date: 20130226
  Transmission Date: 20140127
  Serious: Yes (Hospitalization, Disabling)
  Sender: FDA-Public Use
  Company Number: None

PATIENT
  Age: 65 Year
  Sex: Female
  Weight: 65.77 kg

DRUGS (2)
  1. FOSAMAX [Suspect]
     Dosage: 70 MG WEEKLY PO
     Route: 048
     Dates: start: 20000601, end: 20070101
  2. ACTONEL [Suspect]
     Dosage: 150 MG MONTHLY PO
     Route: 048
     Dates: start: 20070201, end: 20100201

REACTIONS (2)
  - Abasia [None]
  - Pain in extremity [None]
